FAERS Safety Report 25196421 (Version 4)
Quarter: 2025Q2

REPORT INFORMATION
  Report Type: Report from Study
  Country: CO (occurrence: CO)
  Receive Date: 20250415
  Receipt Date: 20250523
  Transmission Date: 20250716
  Serious: Yes (Hospitalization, Other)
  Sender: TAKEDA
  Company Number: CO-TAKEDA-2025TUS025309

PATIENT
  Age: 12 Year
  Sex: Male
  Weight: 40 kg

DRUGS (12)
  1. HUMAN IMMUNOGLOBULIN G\HYALURONIDASE RECOMBINANT HUMAN [Suspect]
     Active Substance: HUMAN IMMUNOGLOBULIN G\HYALURONIDASE (HUMAN RECOMBINANT)
     Indication: Primary immunodeficiency syndrome
     Dosage: 20 GRAM, MONTHLY
     Dates: start: 20250306
  2. HUMAN IMMUNOGLOBULIN G\HYALURONIDASE RECOMBINANT HUMAN [Suspect]
     Active Substance: HUMAN IMMUNOGLOBULIN G\HYALURONIDASE (HUMAN RECOMBINANT)
     Indication: Immunodeficiency
  3. HUMAN IMMUNOGLOBULIN G\HYALURONIDASE RECOMBINANT HUMAN [Suspect]
     Active Substance: HUMAN IMMUNOGLOBULIN G\HYALURONIDASE (HUMAN RECOMBINANT)
     Dosage: 20 GRAM, MONTHLY
  4. LEVOTHYROXINE [Concomitant]
     Active Substance: LEVOTHYROXINE
     Dosage: 175 MICROGRAM, QD
  5. MOMETASONE [Concomitant]
     Active Substance: MOMETASONE
     Dosage: UNK UNK, Q12H
  6. BUDESONIDE [Concomitant]
     Active Substance: BUDESONIDE
     Dosage: 200 MICROGRAM, Q12H
  7. MONTELUKAST [Concomitant]
     Active Substance: MONTELUKAST
  8. FEXOFENADINE [Concomitant]
     Active Substance: FEXOFENADINE HYDROCHLORIDE
  9. FLUTICASONE [Concomitant]
     Active Substance: FLUTICASONE
  10. ALBUTEROL [Concomitant]
     Active Substance: ALBUTEROL
  11. VITAMIN D [Concomitant]
     Active Substance: VITAMIN D NOS
  12. ASCORBIC ACID [Concomitant]
     Active Substance: ASCORBIC ACID

REACTIONS (28)
  - Syncope [Recovered/Resolved]
  - Pneumonia [Unknown]
  - Diabetes insipidus [Unknown]
  - Cough [Recovered/Resolved]
  - Vomiting [Recovered/Resolved]
  - Productive cough [Recovered/Resolved]
  - General physical health deterioration [Recovered/Resolved]
  - Disorientation [Recovered/Resolved]
  - Secretion discharge [Recovered/Resolved]
  - Somnolence [Recovered/Resolved]
  - Empty sella syndrome [Unknown]
  - Increased bronchial secretion [Recovered/Resolved]
  - Epistaxis [Recovered/Resolved]
  - Skin laceration [Unknown]
  - Cerebral cyst [Unknown]
  - Rhinitis allergic [Unknown]
  - Multimorbidity [Unknown]
  - Hypopituitarism [Unknown]
  - Sickle cell anaemia [Unknown]
  - Arachnoid cyst [Unknown]
  - Pallor [Recovered/Resolved]
  - Asthma [Unknown]
  - Dizziness [Recovered/Resolved]
  - Malaise [Recovered/Resolved]
  - Asthenia [Recovered/Resolved]
  - Pyrexia [Recovered/Resolved]
  - Headache [Recovered/Resolved]
  - Dyspnoea [Recovered/Resolved]

NARRATIVE: CASE EVENT DATE: 20250306
